FAERS Safety Report 6620566 (Version 2)
Quarter: 2020Q2

REPORT INFORMATION
  Report Type: Spontaneous
  Country: SE (occurrence: SE)
  Receive Date: 20080422
  Receipt Date: 20200514
  Transmission Date: 20200714
  Serious: Yes (Death, Other)
  Sender: FDA-Public Use
  Company Number: GB-AVENTIS-200813435GDDC

PATIENT
  Age: 87 Year
  Sex: Female

DRUGS (3)
  1. HYDROCHLOROTHIAZIDE. [Suspect]
     Active Substance: HYDROCHLOROTHIAZIDE
     Indication: PRODUCT USED FOR UNKNOWN INDICATION
  2. AMILORIDE [Suspect]
     Active Substance: AMILORIDE
     Indication: PRODUCT USED FOR UNKNOWN INDICATION
     Dosage: UNK
  3. GLIBENCLAMIDE [Suspect]
     Active Substance: GLYBURIDE
     Indication: PRODUCT USED FOR UNKNOWN INDICATION
     Dosage: UNK

REACTIONS (1)
  - Agranulocytosis [Fatal]
